FAERS Safety Report 4607553-9 (Version None)
Quarter: 2005Q1

REPORT INFORMATION
  Report Type: 
  Country: None (occurrence: None)
  Receive Date: 20050310
  Receipt Date: 20050301
  Transmission Date: 20050727
  Serious: Yes (Hospitalization, Other)
  Sender: FDA-Public Use
  Company Number: 2005-00744

PATIENT
  Age: 6 Week
  Sex: Male
  Weight: 3.8 kg

DRUGS (4)
  1. TRAMADOL HCL [Suspect]
     Indication: INDUCTION OF ANAESTHESIA
     Dosage: 7 MG, SINGLE, INTRAVENOUS
     Route: 042
  2. ATROPINE [Suspect]
     Indication: INDUCTION OF ANAESTHESIA
     Dosage: 0.03 MG, SINGLE, INTRAVENOUS
     Route: 042
  3. METHOHEXITONE (METHOHEXITAL) [Suspect]
     Indication: INDUCTION OF ANAESTHESIA
     Dosage: 15 MG, SINGLE, INTRAVENOUS
     Route: 042
  4. SEVOFLURANE [Suspect]
     Indication: ANAESTHESIA
     Dosage: SEE ARTICLE

REACTIONS (1)
  - ANTICHOLINERGIC SYNDROME [None]
